FAERS Safety Report 10426082 (Version 2)
Quarter: 2014Q4

REPORT INFORMATION
  Report Type: Spontaneous
  Country: US (occurrence: US)
  Receive Date: 20140903
  Receipt Date: 20141110
  Transmission Date: 20150528
  Serious: Yes (Hospitalization)
  Sender: FDA-Public Use
  Company Number: US-UNITED THERAPEUTICS-UNT-2014-006667

PATIENT
  Age: 47 Year
  Sex: Female
  Weight: 98.87 kg

DRUGS (2)
  1. REMODULIN [Suspect]
     Active Substance: TREPROSTINIL
     Indication: PULMONARY ARTERIAL HYPERTENSION
     Dosage: 0.100 ?G/KG, CONTINUING
     Route: 041
     Dates: start: 20110813
  2. REMODULIN [Suspect]
     Active Substance: TREPROSTINIL
     Dosage: 0.1015 ?G/KG, CONTINUING
     Route: 041
     Dates: start: 20130711

REACTIONS (6)
  - Device occlusion [Recovered/Resolved]
  - Catheter site haemorrhage [Unknown]
  - Drug dose omission [Unknown]
  - Device leakage [Unknown]
  - Malaise [Unknown]
  - Cold sweat [Unknown]

NARRATIVE: CASE EVENT DATE: 201408
